FAERS Safety Report 12036970 (Version 1)
Quarter: 2016Q1

REPORT INFORMATION
  Report Type: Spontaneous
  Country: None (occurrence: None)
  Receive Date: 20160204
  Receipt Date: 20160204
  Transmission Date: 20160526
  Serious: No
  Sender: FDA-Public Use
  Company Number: None

PATIENT
  Sex: Male

DRUGS (2)
  1. TRULICITY [Suspect]
     Active Substance: DULAGLUTIDE
  2. TOUJEO [Suspect]
     Active Substance: INSULIN GLARGINE

REACTIONS (5)
  - Suicidal ideation [None]
  - Depression [None]
  - Hypertension [None]
  - Blood cholesterol increased [None]
  - Blood glucose decreased [None]
